FAERS Safety Report 15317485 (Version 1)
Quarter: 2018Q3

REPORT INFORMATION
  Report Type: Spontaneous
  Country: NL (occurrence: NL)
  Receive Date: 20180824
  Receipt Date: 20180824
  Transmission Date: 20181010
  Serious: Yes (Other)
  Sender: FDA-Public Use
  Company Number: NL-009507513-1808NLD006881

PATIENT
  Age: 65 Year
  Sex: Female

DRUGS (4)
  1. FURABID [Concomitant]
     Active Substance: NITROFURANTOIN
     Dosage: 2DD1
     Dates: start: 20180717
  2. BRICANYL [Concomitant]
     Active Substance: TERBUTALINE SULFATE
     Dosage: 3DD1
     Dates: start: 20161004
  3. SYMBICORT [Concomitant]
     Active Substance: BUDESONIDE\FORMOTEROL FUMARATE DIHYDRATE
     Dosage: 2DD2
     Dates: start: 20150327
  4. NOXAFIL [Suspect]
     Active Substance: POSACONAZOLE
     Indication: FUNGAL INFECTION
     Dosage: 300 MG, QD
     Route: 048
     Dates: start: 20180614, end: 20180724

REACTIONS (4)
  - Speech disorder [Recovering/Resolving]
  - Monoparesis [Recovering/Resolving]
  - Dizziness [Recovering/Resolving]
  - Neurological symptom [Recovering/Resolving]

NARRATIVE: CASE EVENT DATE: 20180723
